FAERS Safety Report 23682475 (Version 1)
Quarter: 2024Q1

REPORT INFORMATION
  Report Type: Report from Study
  Country: CA (occurrence: CA)
  Receive Date: 20240328
  Receipt Date: 20240328
  Transmission Date: 20240410
  Serious: Yes (Hospitalization)
  Sender: FDA-Public Use
  Company Number: CA-SHIRE-CA202005404

PATIENT
  Age: 1 Year
  Sex: Female

DRUGS (7)
  1. HUMAN IMMUNOGLOBULIN G [Suspect]
     Active Substance: HUMAN IMMUNOGLOBULIN G
     Indication: Secondary immunodeficiency
     Dosage: 1.5 GRAM, 1/WEEK
     Route: 058
     Dates: start: 201906
  2. HUMAN IMMUNOGLOBULIN G [Suspect]
     Active Substance: HUMAN IMMUNOGLOBULIN G
     Dosage: UNK
     Route: 058
     Dates: start: 20200207
  3. HUMAN IMMUNOGLOBULIN G [Suspect]
     Active Substance: HUMAN IMMUNOGLOBULIN G
     Dosage: 1.5 GRAM, 1/WEEK
     Route: 058
     Dates: start: 20200214
  4. HUMAN IMMUNOGLOBULIN G [Suspect]
     Active Substance: HUMAN IMMUNOGLOBULIN G
     Dosage: 1.5 GRAM, QD
     Route: 058
     Dates: start: 20200326
  5. HUMAN IMMUNOGLOBULIN G [Suspect]
     Active Substance: HUMAN IMMUNOGLOBULIN G
     Dosage: 1.50 GRAM, 1/WEEK
     Route: 058
  6. HUMAN IMMUNOGLOBULIN G [Concomitant]
     Active Substance: HUMAN IMMUNOGLOBULIN G
     Indication: Product used for unknown indication
     Dosage: UNK
  7. REVCOVI [Concomitant]
     Active Substance: ELAPEGADEMASE-LVLR
     Indication: Product used for unknown indication
     Dosage: 1 DOSAGE FORM, 1/WEEK
     Dates: start: 2019

REACTIONS (1)
  - Body temperature increased [Recovered/Resolved]

NARRATIVE: CASE EVENT DATE: 20200221
